FAERS Safety Report 8810738 (Version 1)
Quarter: 2012Q4

REPORT INFORMATION
  Report Type: Spontaneous
  Country: TR (occurrence: None)
  Receive Date: 20120920
  Receipt Date: 20120920
  Transmission Date: 20130627
  Serious: Yes (Hospitalization)
  Sender: FDA-Public Use
  Company Number: DSA_59723_2012

PATIENT
  Age: 7 Month
  Sex: Female

DRUGS (2)
  1. FLAGYL (METRONIDAZOLE BENZOATE) [Suspect]
     Indication: PRODUCT USED FOR UNKNOWN INDICATION
     Dosage: (80 mg TID Intravenous (not otherwise specified))
     Route: 042
     Dates: start: 20120731, end: 20120801
  2. CEFTRIAXONE [Concomitant]

REACTIONS (4)
  - Restlessness [None]
  - Flushing [None]
  - Rash [None]
  - Pyrexia [None]
